FAERS Safety Report 19060010 (Version 1)
Quarter: 2021Q1

REPORT INFORMATION
  Report Type: Spontaneous
  Country: PL (occurrence: PL)
  Receive Date: 20210326
  Receipt Date: 20210326
  Transmission Date: 20210420
  Serious: Yes (Other)
  Sender: FDA-Public Use
  Company Number: PL-TEVA-2021-PL-1893354

PATIENT
  Age: 63 Year
  Sex: Male
  Weight: 71 kg

DRUGS (5)
  1. 5?FLUOROURACIL [Suspect]
     Active Substance: FLUOROURACIL
     Indication: PANCREATIC CARCINOMA
     Dosage: 2244MILLIGRAM
     Route: 041
     Dates: start: 20200324, end: 20200326
  2. 5?FLUOROURACIL [Suspect]
     Active Substance: FLUOROURACIL
     Route: 040
     Dates: start: 20200324, end: 20200326
  3. IRINOTECAN [Suspect]
     Active Substance: IRINOTECAN
     Indication: PANCREATIC CARCINOMA
     Dosage: 336.6MILLIGRAM
     Route: 042
     Dates: start: 20200324, end: 20200326
  4. OXALIPLATIN. [Suspect]
     Active Substance: OXALIPLATIN
     Indication: PANCREATIC CARCINOMA
     Dosage: 158.95MILLIGRAM
     Route: 042
     Dates: start: 20200324, end: 20200326
  5. CALCIUM FOLINATE [Suspect]
     Active Substance: LEUCOVORIN CALCIUM
     Indication: PANCREATIC CARCINOMA
     Dosage: DOSE: 374; DOSE UNIT: NOT SPECIFIED
     Route: 042
     Dates: start: 20200324, end: 20200326

REACTIONS (1)
  - Neutropenia [Unknown]

NARRATIVE: CASE EVENT DATE: 20200407
